FAERS Safety Report 6028620-1 (Version None)
Quarter: 2009Q1

REPORT INFORMATION
  Report Type: 
  Country: None (occurrence: None)
  Receive Date: 20090106
  Receipt Date: 20081230
  Transmission Date: 20090719
  Serious: Yes (Hospitalization)
  Sender: FDA-Public Use
  Company Number: BR-PFIZER INC-2008023801

PATIENT
  Sex: Female

DRUGS (10)
  1. BLINDED *PLACEBO [Suspect]
     Indication: OSTEOARTHRITIS
     Dosage: MULTIPLE ARMS
     Route: 048
     Dates: start: 20071113
  2. BLINDED CELECOXIB [Suspect]
     Indication: OSTEOARTHRITIS
     Dosage: MULTIPLE ARMS
     Route: 048
     Dates: start: 20071113
  3. IBUPROFEN TABLETS [Suspect]
     Indication: OSTEOARTHRITIS
     Dosage: MULTIPLE ARMS
     Route: 048
     Dates: start: 20071113
  4. NAPROXEN [Suspect]
     Indication: OSTEOARTHRITIS
     Dosage: MULTIPLE ARMS
     Route: 048
     Dates: start: 20071113
  5. NEXIUM [Concomitant]
     Route: 048
     Dates: start: 20071113
  6. METFORMIN HCL [Concomitant]
     Route: 048
     Dates: start: 20030101
  7. GLIBENCLAMIDE [Concomitant]
     Route: 048
     Dates: start: 20000101
  8. CAPTOPRIL [Concomitant]
     Route: 048
     Dates: start: 19990101
  9. HYDROCHLOROTHIAZIDE [Concomitant]
     Route: 048
     Dates: start: 20071113
  10. ACETYLSALICYLIC ACID [Concomitant]
     Route: 048
     Dates: start: 20080213

REACTIONS (3)
  - BACK PAIN [None]
  - HYPERTENSIVE CRISIS [None]
  - INTERVERTEBRAL DISC PROTRUSION [None]
